FAERS Safety Report 8484326-0 (Version None)
Quarter: 2012Q3

REPORT INFORMATION
  Report Type: 
  Country: None (occurrence: None)
  Receive Date: 20120703
  Receipt Date: 20120626
  Transmission Date: 20120928
  Serious: Yes (Hospitalization, Other)
  Sender: FDA-Public Use
  Company Number: PHEH2012US010139

PATIENT
  Sex: Female
  Weight: 83.3 kg

DRUGS (11)
  1. HYPER-CVAD [Concomitant]
  2. CYTARABINE [Concomitant]
  3. VICODIN [Concomitant]
  4. METHOTREXATE [Concomitant]
  5. MELOXICAM [Concomitant]
  6. POTASSIUM [Concomitant]
  7. GLEEVEC [Suspect]
     Indication: ACUTE LYMPHOCYTIC LEUKAEMIA
     Dosage: 600 MG, QD
     Route: 048
     Dates: start: 20110725
  8. VITAMIN D [Concomitant]
  9. PREMARIN [Concomitant]
  10. NEULASTA [Concomitant]
  11. RESTORIL [Concomitant]

REACTIONS (10)
  - HYPOKALAEMIA [None]
  - FLUID OVERLOAD [None]
  - DYSPNOEA [None]
  - SWELLING [None]
  - FATIGUE [None]
  - SKIN CANCER [None]
  - STAPHYLOCOCCAL BACTERAEMIA [None]
  - VENOUS INSUFFICIENCY [None]
  - NEOPLASM MALIGNANT [None]
  - GASTROOESOPHAGEAL REFLUX DISEASE [None]
